FAERS Safety Report 5048623-3 (Version None)
Quarter: 2006Q2

REPORT INFORMATION
  Report Type: 
  Country: None (occurrence: None)
  Receive Date: 20060601
  Receipt Date: 20060215
  Transmission Date: 20061013
  Serious: No
  Sender: FDA-Public Use
  Company Number: 2006PV008752

PATIENT
  Age: 36 Year
  Sex: Female
  Weight: 86.637 kg

DRUGS (6)
  1. BYETTA [Suspect]
     Indication: DIABETES MELLITUS
     Dosage: SEE IMAGE
     Route: 058
     Dates: start: 20051001, end: 20051116
  2. BYETTA [Suspect]
     Indication: DIABETES MELLITUS
     Dosage: SEE IMAGE
     Route: 058
     Dates: start: 20051116, end: 20051216
  3. BYETTA [Suspect]
     Indication: DIABETES MELLITUS
     Dosage: SEE IMAGE
     Route: 058
     Dates: start: 20060101
  4. ACTOS [Concomitant]
  5. AVACOR [Concomitant]
  6. BUFFERIN [Concomitant]

REACTIONS (6)
  - ANOREXIA [None]
  - INJECTION SITE IRRITATION [None]
  - NAUSEA [None]
  - PAROSMIA [None]
  - VOMITING [None]
  - WEIGHT DECREASED [None]
